FAERS Safety Report 7734890-1 (Version None)
Quarter: 2011Q3

REPORT INFORMATION
  Report Type: 
  Country: None (occurrence: None)
  Receive Date: 20110907
  Receipt Date: 20110824
  Transmission Date: 20111222
  Serious: Yes (Hospitalization, Other)
  Sender: FDA-Public Use
  Company Number: PHHY2011BR48138

PATIENT
  Sex: Male

DRUGS (7)
  1. VITAMIN B COMPLEX CAP [Concomitant]
     Dosage: UNK UKN, UNK
     Route: 048
  2. NEOMYCIN SULFATE [Concomitant]
     Dosage: UNK UKN, UNK
     Route: 048
  3. FOLIC ACID [Concomitant]
     Indication: HEPATIC VEIN DILATATION
     Dosage: UNK DOSE, ONCE DAILY
  4. INSULIN [Concomitant]
     Indication: DIABETES MELLITUS
     Dosage: 20 IU, QD
  5. DIOVAN [Suspect]
     Indication: BLOOD PRESSURE
     Dosage: 160 MG, QD
     Route: 048
     Dates: start: 20040101
  6. ETILISIO [Concomitant]
     Dosage: UNK UKN, UNK
     Route: 048
  7. DIACQUA [Concomitant]
     Dosage: UNK UKN, UNK
     Route: 048

REACTIONS (2)
  - GENERAL PHYSICAL HEALTH DETERIORATION [None]
  - DIABETES MELLITUS INADEQUATE CONTROL [None]
